FAERS Safety Report 20205737 (Version 2)
Quarter: 2022Q1

REPORT INFORMATION
  Report Type: Report from Study
  Country: US (occurrence: US)
  Receive Date: 20211220
  Receipt Date: 20220113
  Transmission Date: 20220423
  Serious: Yes (Death, Hospitalization, Other)
  Sender: FDA-Public Use
  Company Number: US-ASTELLAS-2021US048353

PATIENT
  Sex: Male

DRUGS (3)
  1. GILTERITINIB [Suspect]
     Active Substance: GILTERITINIB
     Indication: Pancytopenia
     Route: 048
     Dates: start: 20211124
  2. GILTERITINIB [Suspect]
     Active Substance: GILTERITINIB
     Indication: Acute myeloid leukaemia
     Route: 048
  3. GILTERITINIB [Suspect]
     Active Substance: GILTERITINIB
     Route: 048

REACTIONS (7)
  - Death [Fatal]
  - Skin discolouration [Unknown]
  - Peripheral swelling [Unknown]
  - Full blood count abnormal [Unknown]
  - Feeling abnormal [Unknown]
  - Product use in unapproved indication [Unknown]
  - Off label use [Unknown]
